FAERS Safety Report 6067662-7 (Version None)
Quarter: 2009Q1

REPORT INFORMATION
  Report Type: 
  Country: None (occurrence: None)
  Receive Date: 20090205
  Receipt Date: 20090130
  Transmission Date: 20090719
  Serious: Yes (Other)
  Sender: FDA-Public Use
  Company Number: RS-GENENTECH-276530

PATIENT

DRUGS (6)
  1. ACTIVASE [Suspect]
     Indication: ACUTE MYOCARDIAL INFARCTION
     Dosage: 100 MG, UNK
     Route: 042
  2. ACETYLSALICYLIC ACID SRT [Suspect]
     Indication: ANTIPLATELET THERAPY
     Dosage: 100 MG, QD
  3. CLOPIDOGREL [Suspect]
     Indication: ANTIPLATELET THERAPY
     Dosage: UNK, UNK
  4. CLOPIDOGREL [Suspect]
     Dosage: 75 MG, QD
  5. ENOXAPARIN SODIUM [Suspect]
     Indication: ANTICOAGULANT THERAPY
     Dosage: 30 MG, UNK
     Route: 040
  6. ENOXAPARIN SODIUM [Suspect]
     Dosage: 1 MG/KG, Q12H
     Route: 058

REACTIONS (1)
  - CORONARY ARTERY BYPASS [None]
